FAERS Safety Report 15151160 (Version 1)
Quarter: 2018Q3

REPORT INFORMATION
  Report Type: Spontaneous
  Country: US (occurrence: US)
  Receive Date: 20180716
  Receipt Date: 20180716
  Transmission Date: 20181010
  Serious: No
  Sender: FDA-Public Use
  Company Number: US-SA-2018SA189055

PATIENT
  Age: 34 Year
  Sex: Male

DRUGS (12)
  1. AMANTADINE. [Concomitant]
     Active Substance: AMANTADINE HYDROCHLORIDE
  2. PENICILLIN?VK [Concomitant]
     Active Substance: PENICILLIN V POTASSIUM
  3. AUBAGIO [Suspect]
     Active Substance: TERIFLUNOMIDE
     Dosage: 14 MG, QD
     Route: 048
  4. TRAMADOL. [Concomitant]
     Active Substance: TRAMADOL
  5. PREDNISONE. [Concomitant]
     Active Substance: PREDNISONE
  6. VENLAFAXINE [Concomitant]
     Active Substance: VENLAFAXINE HYDROCHLORIDE
  7. GABAPENTIN. [Concomitant]
     Active Substance: GABAPENTIN
  8. DICLOFENAC [Concomitant]
     Active Substance: DICLOFENAC
  9. NAPROXEN. [Concomitant]
     Active Substance: NAPROXEN
  10. FAMCICLOVIR. [Concomitant]
     Active Substance: FAMCICLOVIR
  11. HYDROXYZINE PAMOATE. [Concomitant]
     Active Substance: HYDROXYZINE PAMOATE
  12. CEFADROXIL. [Concomitant]
     Active Substance: CEFADROXIL

REACTIONS (3)
  - Alopecia [Recovered/Resolved]
  - Flushing [Recovered/Resolved]
  - Skin exfoliation [Recovered/Resolved]
